FAERS Safety Report 13725919 (Version 1)
Quarter: 2017Q3

REPORT INFORMATION
  Report Type: Spontaneous
  Country: US (occurrence: US)
  Receive Date: 20170706
  Receipt Date: 20170706
  Transmission Date: 20171127
  Serious: Yes (Disabling)
  Sender: FDA-Public Use
  Company Number: None

PATIENT
  Age: 11 Year
  Sex: Male
  Weight: 36 kg

DRUGS (4)
  1. CHILDREN^S VITAMIN [Concomitant]
  2. PROBIOTIC [Concomitant]
     Active Substance: PROBIOTICS NOS
  3. GUMMY FIBER [Concomitant]
  4. MIRALAX [Suspect]
     Active Substance: POLYETHYLENE GLYCOL 3350
     Indication: CONSTIPATION
     Dosage: ?          OTHER STRENGTH:GM;?
     Route: 048

REACTIONS (5)
  - Abnormal behaviour [None]
  - Obsessive-compulsive disorder [None]
  - Anger [None]
  - Generalised anxiety disorder [None]
  - Attention deficit/hyperactivity disorder [None]

NARRATIVE: CASE EVENT DATE: 20170101
